FAERS Safety Report 8085639-7 (Version None)
Quarter: 2012Q1

REPORT INFORMATION
  Report Type: 
  Country: None (occurrence: None)
  Receive Date: 20120128
  Receipt Date: 20110411
  Transmission Date: 20120608
  Serious: No
  Sender: FDA-Public Use
  Company Number: US-ABBOTT-11P-163-0716288-00

PATIENT
  Sex: Female
  Weight: 64.468 kg

DRUGS (10)
  1. VITAMIN D [Concomitant]
     Indication: PRODUCT USED FOR UNKNOWN INDICATION
  2. REMERON [Concomitant]
     Indication: ANXIETY
     Route: 048
  3. TUMERIC [Concomitant]
     Indication: PRODUCT USED FOR UNKNOWN INDICATION
     Dates: start: 20110301
  4. METHOTREXATE [Concomitant]
     Indication: RHEUMATOID ARTHRITIS
     Route: 048
  5. FOLIC ACID [Concomitant]
     Indication: PRODUCT USED FOR UNKNOWN INDICATION
  6. HUMIRA [Suspect]
     Indication: COLITIS ULCERATIVE
  7. MULTI-VITAMIN [Concomitant]
     Indication: PRODUCT USED FOR UNKNOWN INDICATION
  8. HUMIRA [Suspect]
     Indication: RHEUMATOID ARTHRITIS
     Dosage: RIGHT THIGH SAMPLE IN MD OFFICE
     Route: 058
     Dates: start: 20110330
  9. LOVAZA [Concomitant]
     Indication: BLOOD CHOLESTEROL INCREASED
  10. PREDNISONE TAB [Concomitant]
     Indication: PRODUCT USED FOR UNKNOWN INDICATION

REACTIONS (5)
  - FATIGUE [None]
  - NAUSEA [None]
  - SOMNOLENCE [None]
  - DEPRESSION [None]
  - MALAISE [None]
